FAERS Safety Report 10743348 (Version 1)
Quarter: 2015Q1

REPORT INFORMATION
  Report Type: Report from Study
  Country: US (occurrence: US)
  Receive Date: 20150127
  Receipt Date: 20150127
  Transmission Date: 20150721
  Serious: Yes (Other)
  Sender: FDA-Public Use
  Company Number: US-AMGEN-USASL2015006293

PATIENT
  Age: 55 Year
  Sex: Female

DRUGS (1)
  1. ENBREL [Suspect]
     Active Substance: ETANERCEPT
     Indication: PSORIATIC ARTHROPATHY
     Dosage: 50 MG, QWK
     Route: 058
     Dates: start: 200912

REACTIONS (6)
  - Epistaxis [Unknown]
  - Nasal discharge discolouration [Unknown]
  - Urinary tract infection [Unknown]
  - Renal cyst [Unknown]
  - Hip arthroplasty [Unknown]
  - Sinus disorder [Unknown]

NARRATIVE: CASE EVENT DATE: 201407
